FAERS Safety Report 5527552-2 (Version None)
Quarter: 2007Q4

REPORT INFORMATION
  Report Type: 
  Country: None (occurrence: None)
  Receive Date: 20071128
  Receipt Date: 20071116
  Transmission Date: 20080405
  Serious: Yes (Disabling, Other)
  Sender: FDA-Public Use
  Company Number: US-ELI_LILLY_AND_COMPANY-US200711004054

PATIENT
  Sex: Female

DRUGS (4)
  1. FORTEO [Suspect]
     Dates: start: 20060501
  2. ALTACE [Concomitant]
  3. SERTRALINE [Concomitant]
  4. PLAVIX [Concomitant]

REACTIONS (2)
  - CEREBROVASCULAR ACCIDENT [None]
  - WHEELCHAIR USER [None]
